FAERS Safety Report 6835859-1 (Version None)
Quarter: 2010Q3

REPORT INFORMATION
  Report Type: 
  Country: None (occurrence: None)
  Receive Date: 20100712
  Receipt Date: 20100712
  Transmission Date: 20110219
  Serious: Yes (Death)
  Sender: FDA-Public Use
  Company Number: None

PATIENT
  Age: 72 Year
  Sex: Female

DRUGS (1)
  1. AMOXICILLIN [Suspect]

REACTIONS (2)
  - CARDIAC ARREST [None]
  - HYPOXIC-ISCHAEMIC ENCEPHALOPATHY [None]
